FAERS Safety Report 11805205 (Version 1)
Quarter: 2015Q4

REPORT INFORMATION
  Report Type: Spontaneous
  Country: None (occurrence: None)
  Receive Date: 20151203
  Receipt Date: 20151203
  Transmission Date: 20160305
  Serious: Yes (Disabling)
  Sender: FDA-Public Use
  Company Number: None

PATIENT
  Age: 74 Year
  Sex: Female
  Weight: 52.62 kg

DRUGS (2)
  1. BLOOD PRESSURE CONTROL [Concomitant]
  2. LISINOPRIL-HYDROCHLORO 12.5MG 68180051901 [Suspect]
     Active Substance: HYDROCHLOROTHIAZIDE\LISINOPRIL
     Indication: BLOOD PRESSURE INCREASED
     Dates: start: 20130913

REACTIONS (2)
  - Dizziness [None]
  - Blindness unilateral [None]

NARRATIVE: CASE EVENT DATE: 20130913
